FAERS Safety Report 10747748 (Version 2)
Quarter: 2015Q1

REPORT INFORMATION
  Report Type: Spontaneous
  Country: US (occurrence: US)
  Receive Date: 20150129
  Receipt Date: 20150303
  Transmission Date: 20150721
  Serious: No
  Sender: FDA-Public Use
  Company Number: US-PFIZER INC-2015032257

PATIENT
  Age: 69 Year
  Sex: Female
  Weight: 95 kg

DRUGS (1)
  1. ADVIL [Suspect]
     Active Substance: IBUPROFEN
     Indication: ARTHRALGIA
     Dosage: 400 MG (TWO 200MG TABLETS), UNK
     Route: 048
     Dates: start: 20150121, end: 201501

REACTIONS (3)
  - Retching [Recovered/Resolved]
  - Discomfort [Recovered/Resolved]
  - Throat irritation [Recovered/Resolved]

NARRATIVE: CASE EVENT DATE: 20150121
